FAERS Safety Report 15237821 (Version 4)
Quarter: 2018Q3

REPORT INFORMATION
  Report Type: Spontaneous
  Country: DE (occurrence: DE)
  Receive Date: 20180803
  Receipt Date: 20180914
  Transmission Date: 20181010
  Serious: Yes (Death, Congenital Anomaly)
  Sender: FDA-Public Use
  Company Number: DE-ROCHE-2162345

PATIENT
  Weight: .06 kg

DRUGS (27)
  1. ENOXAPARIN [Suspect]
     Active Substance: ENOXAPARIN
     Indication: PRODUCT USED FOR UNKNOWN INDICATION
     Dosage: FROM GESTATIONAL WEEK 0?14
     Route: 064
  2. RAMIPRIL. [Suspect]
     Active Substance: RAMIPRIL
     Indication: PRODUCT USED FOR UNKNOWN INDICATION
     Dosage: FROM GESTATIONAL WEEK 0?113+6
     Route: 064
  3. SIMVASTATIN. [Suspect]
     Active Substance: SIMVASTATIN
     Indication: PRODUCT USED FOR UNKNOWN INDICATION
     Dosage: THERAPY START DATE:14/DEC/2011?CESSATION DATE: 20/MAR/2012?FROM GESTATIONAL WEEK 0?14
     Route: 064
  4. PANTOZOL [Suspect]
     Active Substance: PANTOPRAZOLE SODIUM
     Indication: PRODUCT USED FOR UNKNOWN INDICATION
     Dosage: THERAPY START DATE:14/DEC/2011?CESSATION DATE: 20/MAR/2012?DOSE: 40 MG, FREQUENCY: ONCE DAILY
     Route: 064
  5. RASILEZ [Suspect]
     Active Substance: ALISKIREN
     Indication: PRODUCT USED FOR UNKNOWN INDICATION
     Dosage: THERAPY START DATE:14/DEC/2011?CESSATION DATE: 17/JAN/2012?DOSE: 300 MG, FREQUENCY: ONCE DAILY
     Route: 064
  6. MIFEGYNE [Concomitant]
     Active Substance: MIFEPRISTONE
     Dosage: START DATE AND CESSATION DATE: 20/MAR/2012
     Route: 064
  7. CYTOTEC [Concomitant]
     Active Substance: MISOPROSTOL
     Dosage: START DATE AND CESSATION DATE: 20/MAR/2012
     Route: 064
  8. CYCLOPHOSPHAMIDE. [Concomitant]
     Active Substance: CYCLOPHOSPHAMIDE
     Dosage: 3000 MG CUMULATIVE?START DATE, CESSATION DATE: /AUG/2011
     Route: 064
  9. RITUXIMAB. [Suspect]
     Active Substance: RITUXIMAB
     Indication: PRODUCT USED FOR UNKNOWN INDICATION
     Route: 064
  10. XARELTO [Suspect]
     Active Substance: RIVAROXABAN
     Indication: PRODUCT USED FOR UNKNOWN INDICATION
     Dosage: FROM GESTATIONAL WEEK 0?5
     Route: 064
  11. NICOTINE. [Suspect]
     Active Substance: NICOTINE
     Indication: PRODUCT USED FOR UNKNOWN INDICATION
     Dosage: FROM GESTATIONAL WEEK 0?14
     Route: 064
  12. QUENSYL [Suspect]
     Active Substance: HYDROXYCHLOROQUINE
     Indication: PRODUCT USED FOR UNKNOWN INDICATION
     Dosage: THERAPY START DATE:14/DEC/2011?CESSATION DATE: 20/MAR/2012?DOSE: 400 MG, FREQUENCY: ONCE DAILY
     Route: 064
  13. HYDROXYCHLOROQUINE [Suspect]
     Active Substance: HYDROXYCHLOROQUINE
     Indication: PRODUCT USED FOR UNKNOWN INDICATION
     Dosage: FROM GESTATIONAL WEEK 0?14
     Route: 064
  14. TOREM [Suspect]
     Active Substance: TORSEMIDE
     Indication: PRODUCT USED FOR UNKNOWN INDICATION
     Dosage: THERAPY START DATE:14/DEC/2011?CESSATION DATE: 20/MAR/2012?DOSE: 100 MG, FREQUENCY: ONCE DAILY?FROM
     Route: 064
  15. DALTEPARIN SODIUM [Suspect]
     Active Substance: DALTEPARIN SODIUM
     Indication: PRODUCT USED FOR UNKNOWN INDICATION
     Route: 064
  16. EZETIMIBE. [Suspect]
     Active Substance: EZETIMIBE
     Indication: PRODUCT USED FOR UNKNOWN INDICATION
     Dosage: FROM GESTATIONAL WEEK 0?14
     Route: 064
  17. SALBUTAMOL [Suspect]
     Active Substance: ALBUTEROL
     Indication: PRODUCT USED FOR UNKNOWN INDICATION
     Dosage: FREQUENCY: DAILY?FROM GESTATIONAL WEEK 0?14
     Route: 064
  18. CLEXANE [Suspect]
     Active Substance: ENOXAPARIN SODIUM
     Indication: PRODUCT USED FOR UNKNOWN INDICATION
     Dosage: THERAPY START DATE:14/DEC/2011?CESSATION DATE: 20/MAR/2012?DOSE: 200 MG, FREQUENCY: ONCE DAILY
     Route: 064
  19. ACETYLSALICYLIC ACID [Suspect]
     Active Substance: ASPIRIN
     Indication: PRODUCT USED FOR UNKNOWN INDICATION
     Dosage: THERAPY START DATE:14/DEC/2011?CESSATION DATE: 20/MAR/2012?DOSE: 100 MG, FREQUENCY: ONCE DAILY100 MG
     Route: 064
  20. NOVAMINSULFON [Suspect]
     Active Substance: METAMIZOLE
     Indication: PRODUCT USED FOR UNKNOWN INDICATION
     Route: 064
  21. METAMIZOLE [Suspect]
     Active Substance: METAMIZOLE
     Indication: PRODUCT USED FOR UNKNOWN INDICATION
     Dosage: FROM GESTATIONAL WEEK 0?14
     Route: 064
  22. PANTOPRAZOLE [Suspect]
     Active Substance: PANTOPRAZOLE
     Indication: PRODUCT USED FOR UNKNOWN INDICATION
     Dosage: FROM GESTATIONAL WEEK 0?14
     Route: 064
  23. ALISKIREN [Suspect]
     Active Substance: ALISKIREN
     Indication: PRODUCT USED FOR UNKNOWN INDICATION
     Route: 064
  24. PREDNISOLON [Suspect]
     Active Substance: PREDNISOLONE
     Indication: PRODUCT USED FOR UNKNOWN INDICATION
     Dosage: THERAPY START DATE:14/DEC/2011?CESSATION DATE: 20/MAR/2012?DOSE: 200 MG, FREQUENCY: EVERY 2 DAYS?FRO
     Route: 064
  25. TACROLIMUS. [Suspect]
     Active Substance: TACROLIMUS
     Indication: PRODUCT USED FOR UNKNOWN INDICATION
     Dosage: FROM GESTATIONAL WEEK 0?14
     Route: 064
  26. ADVAGRAF [Suspect]
     Active Substance: TACROLIMUS
     Indication: PRODUCT USED FOR UNKNOWN INDICATION
     Dosage: THERAPY START DATE:14/DEC/2011?CESSATION DATE: 20/MAR/2012?DOSE: 6 MG, FREQUENCY: ONCE DAILY
     Route: 064
  27. DELIX (RAMIPRIL) [Suspect]
     Active Substance: RAMIPRIL
     Indication: PRODUCT USED FOR UNKNOWN INDICATION
     Dosage: THERAPY START DATE:14/DEC/2011?CESSATION DATE: 20/MAR/2012?DOSE: 20 MG, FREQUENCY: ONCE DAILY
     Route: 064

REACTIONS (8)
  - Premature baby [Unknown]
  - Foetal exposure during pregnancy [Unknown]
  - Truncus arteriosus persistent [Fatal]
  - Low birth weight baby [Unknown]
  - Congenital cardiovascular anomaly [Fatal]
  - Heart disease congenital [Fatal]
  - Cardiac septal defect [Fatal]
  - Ventricular septal defect [Fatal]
